FAERS Safety Report 6168601-0 (Version None)
Quarter: 2009Q2

REPORT INFORMATION
  Report Type: 
  Country: None (occurrence: None)
  Receive Date: 20090423
  Receipt Date: 20090413
  Transmission Date: 20091009
  Serious: Yes (Other)
  Sender: FDA-Public Use
  Company Number: 246174

PATIENT
  Age: 51 Year
  Sex: Male
  Weight: 87 kg

DRUGS (8)
  1. ONDANSETRON [Suspect]
     Indication: PROPHYLAXIS OF NAUSEA AND VOMITING
     Dosage: 4 MG, TWICE, INTRAVENOUS
     Route: 042
  2. CEFAZOLIN [Concomitant]
  3. ROCURONIUM BROMIDE [Concomitant]
  4. ISOFLURANE [Concomitant]
  5. FENTANYL [Concomitant]
  6. MIDAZOLAM HCL [Concomitant]
  7. (GLYCOPYRROLATE /00196202/) [Concomitant]
  8. PROPOFOL [Concomitant]

REACTIONS (10)
  - ARTERIOSPASM CORONARY [None]
  - ATRIAL FIBRILLATION [None]
  - CORONARY ARTERY STENOSIS [None]
  - ELECTROCARDIOGRAM ST SEGMENT ELEVATION [None]
  - HYPERHIDROSIS [None]
  - HYPOTENSION [None]
  - LEFT ATRIAL DILATATION [None]
  - LEFT VENTRICULAR HYPERTROPHY [None]
  - NAUSEA [None]
  - VOMITING [None]
